FAERS Safety Report 23052670 (Version 9)
Quarter: 2023Q4

REPORT INFORMATION
  Report Type: Spontaneous
  Country: US (occurrence: US)
  Receive Date: 20231011
  Receipt Date: 20231120
  Transmission Date: 20240110
  Serious: No
  Sender: FDA-Public Use
  Company Number: US-JNJFOC-20231001455

PATIENT
  Sex: Female

DRUGS (7)
  1. TREMFYA [Suspect]
     Active Substance: GUSELKUMAB
     Indication: Psoriasis
     Route: 065
  2. TREMFYA [Suspect]
     Active Substance: GUSELKUMAB
     Route: 065
  3. TREMFYA [Suspect]
     Active Substance: GUSELKUMAB
     Route: 065
  4. TREMFYA [Suspect]
     Active Substance: GUSELKUMAB
     Route: 065
  5. TREMFYA [Suspect]
     Active Substance: GUSELKUMAB
     Route: 065
  6. TREMFYA [Suspect]
     Active Substance: GUSELKUMAB
     Route: 065
  7. TREMFYA [Suspect]
     Active Substance: GUSELKUMAB
     Route: 065

REACTIONS (5)
  - Device malfunction [Unknown]
  - Underdose [Unknown]
  - Product dose omission issue [Unknown]
  - Product label issue [Unknown]
  - Rash [Unknown]
